FAERS Safety Report 9369357 (Version 3)
Quarter: 2014Q1

REPORT INFORMATION
  Report Type: Report from Study
  Country: AU (occurrence: AU)
  Receive Date: 20130626
  Receipt Date: 20140319
  Transmission Date: 20141002
  Serious: Yes (Death, Life-Threatening, Hospitalization)
  Sender: FDA-Public Use
  Company Number: AU-ROCHE-1240376

PATIENT
  Age: 78 Year
  Sex: Female
  Weight: 57.1 kg

DRUGS (10)
  1. RANIBIZUMAB [Suspect]
     Indication: AGE-RELATED MACULAR DEGENERATION
     Route: 050
     Dates: start: 20080725
  2. RANIBIZUMAB [Suspect]
     Route: 050
     Dates: start: 20121017
  3. RANIBIZUMAB [Suspect]
     Route: 050
     Dates: start: 20121214
  4. RANIBIZUMAB [Suspect]
     Route: 050
     Dates: start: 20080527
  5. ATORVASTATIN [Concomitant]
  6. SERETIDE [Concomitant]
  7. TERBUTALINE SULFATE [Concomitant]
  8. ALBUTEROL [Concomitant]
  9. ALPHAGAN [Concomitant]
  10. DIAZEPAM [Concomitant]
     Route: 065
     Dates: start: 2000

REACTIONS (3)
  - Gastric haemorrhage [Fatal]
  - Gastric ulcer perforation [Recovered/Resolved with Sequelae]
  - Haemoptysis [Recovered/Resolved]
